FAERS Safety Report 6044936-7 (Version None)
Quarter: 2009Q1

REPORT INFORMATION
  Report Type: 
  Country: None (occurrence: None)
  Receive Date: 20090116
  Receipt Date: 20090116
  Transmission Date: 20090719
  Serious: Yes (Other)
  Sender: FDA-Public Use
  Company Number: None

PATIENT
  Age: 30 Year
  Sex: Female
  Weight: 90.7194 kg

DRUGS (3)
  1. GABAPENTIN [Suspect]
     Dosage: 3 YEARS AGO
  2. DEPAKOTE [Concomitant]
  3. VALIUM [Concomitant]

REACTIONS (4)
  - CONVULSION [None]
  - PYREXIA [None]
  - RASH [None]
  - THERAPEUTIC RESPONSE UNEXPECTED WITH DRUG SUBSTITUTION [None]
